FAERS Safety Report 5875512-4 (Version None)
Quarter: 2008Q3

REPORT INFORMATION
  Report Type: 
  Country: None (occurrence: None)
  Receive Date: 20080909
  Receipt Date: 20080829
  Transmission Date: 20090109
  Serious: Yes (Hospitalization)
  Sender: FDA-Public Use
  Company Number: FR-WYE-H05873108

PATIENT
  Age: 82 Year
  Sex: Female

DRUGS (9)
  1. CORDARONE [Suspect]
     Indication: TACHYCARDIA
     Route: 048
     Dates: start: 20050901, end: 20051001
  2. LASIX [Concomitant]
  3. NIDREL [Concomitant]
     Dosage: UNKNOWN
     Route: 048
  4. DIPROSONE [Concomitant]
     Indication: PUSTULAR PSORIASIS
     Dosage: UNKNOWN
     Route: 061
  5. PLAVIX [Concomitant]
     Dosage: UNKNOWN
     Route: 048
  6. CEFTAZIDIME [Concomitant]
     Dosage: UNKNOWN
     Route: 062
  7. DIFFU K [Concomitant]
     Dosage: UNKNOWN
     Route: 048
  8. SORIATANE [Suspect]
     Indication: PUSTULAR PSORIASIS
     Route: 048
     Dates: end: 20051001
  9. LEVOTHYROX [Concomitant]
     Route: 048

REACTIONS (2)
  - BRADYCARDIA [None]
  - LUNG DISORDER [None]
